FAERS Safety Report 7230798-9 (Version None)
Quarter: 2011Q1

REPORT INFORMATION
  Report Type: 
  Country: None (occurrence: None)
  Receive Date: 20110107
  Receipt Date: 20101227
  Transmission Date: 20110831
  Serious: Yes (Hospitalization)
  Sender: FDA-Public Use
  Company Number: 1000015832

PATIENT
  Age: 68 Year
  Sex: Female

DRUGS (2)
  1. ESCITALOPRAM [Suspect]
     Indication: DEPRESSION
     Dosage: 5 MG (5 MG, 1 IN 1 D),ORAL
     Route: 048
     Dates: start: 20090101
  2. PRITOR (TELMISARTAN) (TABLETS) [Suspect]
     Indication: HYPERTENSION
     Dosage: 80 MG (80 MG,1 IN 1 D), ORAL
     Route: 048
     Dates: start: 20090101

REACTIONS (3)
  - PERITONEAL INFECTION [None]
  - ABDOMINAL PAIN [None]
  - PYREXIA [None]
